FAERS Safety Report 4698274-5 (Version None)
Quarter: 2005Q2

REPORT INFORMATION
  Report Type: 
  Country: None (occurrence: None)
  Receive Date: 20050623
  Receipt Date: 20050404
  Transmission Date: 20051028
  Serious: Yes (Death)
  Sender: FDA-Public Use
  Company Number: US-SANOFI-SYNTHELABO-A03200501002

PATIENT
  Sex: Male
  Weight: 68 kg

DRUGS (10)
  1. PLAVIX [Suspect]
     Indication: CORONARY ARTERY DISEASE
     Route: 048
     Dates: end: 20050106
  2. ASPIRIN [Suspect]
     Indication: DRUG USE FOR UNKNOWN INDICATION
     Route: 048
     Dates: start: 20050106, end: 20050106
  3. HEPARIN [Suspect]
     Indication: DRUG USE FOR UNKNOWN INDICATION
     Route: 065
     Dates: start: 20050106, end: 20050106
  4. WARFARIN [Suspect]
     Indication: DRUG USE FOR UNKNOWN INDICATION
     Dosage: UNK
     Route: 048
     Dates: end: 20050106
  5. EPTIFIBATIDE [Suspect]
     Indication: ANGIOPLASTY
     Route: 040
     Dates: start: 20050106, end: 20050106
  6. EPTIFIBATIDE [Suspect]
     Indication: STENT PLACEMENT
     Route: 040
     Dates: start: 20050106, end: 20050106
  7. EPTIFIBATIDE [Suspect]
     Indication: MYOCARDIAL INFARCTION
     Route: 040
     Dates: start: 20050106, end: 20050106
  8. EPTIFIBATIDE [Suspect]
     Route: 041
     Dates: start: 20050106, end: 20050106
  9. EPTIFIBATIDE [Suspect]
     Route: 041
     Dates: start: 20050106, end: 20050106
  10. EPTIFIBATIDE [Suspect]
     Route: 041
     Dates: start: 20050106, end: 20050106

REACTIONS (14)
  - CARDIAC ARREST [None]
  - CARDIOGENIC SHOCK [None]
  - CHEST DISCOMFORT [None]
  - CHEST PAIN [None]
  - CONFUSIONAL STATE [None]
  - DRUG INEFFECTIVE [None]
  - DYSPNOEA [None]
  - HAEMATURIA [None]
  - MYOCARDIAL ISCHAEMIA [None]
  - RESPIRATORY ARREST [None]
  - SUPRAVENTRICULAR TACHYCARDIA [None]
  - UPPER GASTROINTESTINAL HAEMORRHAGE [None]
  - VENTRICULAR TACHYCARDIA [None]
  - VOMITING [None]
